FAERS Safety Report 9761994 (Version 2)
Quarter: 2014Q1

REPORT INFORMATION
  Report Type: Spontaneous
  Country: US (occurrence: US)
  Receive Date: 20131216
  Receipt Date: 20140224
  Transmission Date: 20141002
  Serious: No
  Sender: FDA-Public Use
  Company Number: US-BIOGENIDEC-2013BI109845

PATIENT
  Age: 61 Year
  Sex: Male

DRUGS (6)
  1. TECFIDERA [Suspect]
     Indication: MULTIPLE SCLEROSIS
  2. TECFIDERA [Suspect]
     Indication: MULTIPLE SCLEROSIS
     Route: 048
     Dates: start: 201304, end: 201305
  3. TECFIDERA [Suspect]
     Indication: MULTIPLE SCLEROSIS
     Route: 048
     Dates: start: 201305
  4. TECFIDERA [Suspect]
     Indication: MULTIPLE SCLEROSIS
     Route: 048
     Dates: start: 201306
  5. TECFIDERA [Suspect]
     Indication: MULTIPLE SCLEROSIS
     Route: 048
  6. AVONEX [Concomitant]
     Indication: MULTIPLE SCLEROSIS
     Route: 030
     Dates: start: 20100501

REACTIONS (13)
  - Abdominal distension [Not Recovered/Not Resolved]
  - Adverse drug reaction [Recovered/Resolved]
  - Depressed mood [Recovered/Resolved]
  - Fatigue [Not Recovered/Not Resolved]
  - Weight increased [Not Recovered/Not Resolved]
  - Food craving [Not Recovered/Not Resolved]
  - Prescribed underdose [Unknown]
  - Feeling abnormal [Unknown]
  - Faecal incontinence [Unknown]
  - Insomnia [Unknown]
  - Abdominal pain upper [Not Recovered/Not Resolved]
  - Gastrointestinal disorder [Recovered/Resolved]
  - Diarrhoea [Not Recovered/Not Resolved]
